FAERS Safety Report 9321776 (Version 2)
Quarter: 2013Q3

REPORT INFORMATION
  Report Type: Spontaneous
  Country: US (occurrence: US)
  Receive Date: 20130531
  Receipt Date: 20130829
  Transmission Date: 20140515
  Serious: Yes (Hospitalization, Other)
  Sender: FDA-Public Use
  Company Number: US-TEVA-408355USA

PATIENT
  Age: 52 Year
  Sex: Male
  Weight: 92.16 kg

DRUGS (20)
  1. ACTIQ [Suspect]
     Indication: BACK PAIN
     Route: 048
     Dates: start: 2005
  2. ANDROGEL [Concomitant]
     Indication: HYPOGONADISM
     Route: 061
  3. CIALIS [Concomitant]
     Indication: HYPOGONADISM
  4. CYMBALTA [Concomitant]
     Indication: FIBROMYALGIA
  5. CYMBALTA [Concomitant]
     Indication: PAIN
  6. TRICOR [Concomitant]
     Indication: HYPERLIPIDAEMIA
  7. CRESTOR [Concomitant]
     Indication: HYPERLIPIDAEMIA
  8. CRESTOR [Concomitant]
     Indication: HYPERTRIGLYCERIDAEMIA
  9. BUPROPION [Concomitant]
     Indication: DEPRESSION
  10. LORTAB [Concomitant]
     Indication: BACK PAIN
  11. FENTANYL [Concomitant]
     Indication: BACK PAIN
     Route: 061
  12. VALIUM [Concomitant]
     Indication: MUSCLE SPASMS
  13. SALONPAS [Concomitant]
     Indication: BACK PAIN
  14. OPANA [Concomitant]
     Indication: BACK PAIN
  15. MULTIVITAMINS [Concomitant]
     Indication: VITAMIN SUPPLEMENTATION
  16. VITAMIN D3 [Concomitant]
     Indication: VITAMIN SUPPLEMENTATION
  17. L-ARGININE [Concomitant]
  18. AMITIZA [Concomitant]
     Indication: CONSTIPATION
  19. MIRALAX [Concomitant]
     Indication: CONSTIPATION
  20. AFRIN NASAL DECONGESTANT [Concomitant]
     Indication: NASAL CONGESTION

REACTIONS (4)
  - Renal cancer recurrent [Not Recovered/Not Resolved]
  - Nephrectomy [Not Recovered/Not Resolved]
  - Post procedural complication [Unknown]
  - Hypogonadism [Not Recovered/Not Resolved]
